FAERS Safety Report 6004852-3 (Version None)
Quarter: 2008Q4

REPORT INFORMATION
  Report Type: 
  Country: None (occurrence: None)
  Receive Date: 20081216
  Receipt Date: 20081204
  Transmission Date: 20090506
  Serious: Yes (Life-Threatening, Hospitalization, Other)
  Sender: FDA-Public Use
  Company Number: GB-PFIZER INC-2008152772

PATIENT

DRUGS (15)
  1. CABERGOLINE [Suspect]
     Indication: PROLACTINOMA
     Dosage: FREQUENCY: TWICE WEEKLY;
     Route: 048
     Dates: start: 20040603
  2. ACETYLSALICYLIC ACID [Concomitant]
  3. ATENOLOL [Concomitant]
  4. ACETAMINOPHEN W/ CODEINE [Concomitant]
  5. CREON [Concomitant]
  6. DOMPERIDONE [Concomitant]
  7. ENALAPRIL MALEATE [Concomitant]
  8. FERROUS SULFATE TAB [Concomitant]
  9. FLUOXETINE HYDROCHLORIDE [Concomitant]
  10. FOLIC ACID [Concomitant]
  11. FUROSEMIDE [Concomitant]
  12. HYDROCORTISONE [Concomitant]
  13. LEVOTHYROXINE SODIUM [Concomitant]
  14. OMEPRAZOLE [Concomitant]
  15. SUSTANON [Concomitant]

REACTIONS (6)
  - ACUTE MYOCARDIAL INFARCTION [None]
  - CARDIAC ANEURYSM [None]
  - CARDIAC VALVE DISEASE [None]
  - DYSPNOEA [None]
  - MITRAL VALVE INCOMPETENCE [None]
  - VENTRICULAR TACHYCARDIA [None]
